FAERS Safety Report 16048301 (Version 1)
Quarter: 2019Q1

REPORT INFORMATION
  Report Type: Spontaneous
  Country: FR (occurrence: FR)
  Receive Date: 20190307
  Receipt Date: 20190307
  Transmission Date: 20190418
  Serious: Yes (Death, Other)
  Sender: FDA-Public Use
  Company Number: FR-PFIZER INC-2019098030

PATIENT
  Age: 64 Year
  Sex: Male
  Weight: 69 kg

DRUGS (8)
  1. PANTOPRAZOLE [Concomitant]
     Active Substance: PANTOPRAZOLE
     Dosage: 40 MG, UNK
     Route: 042
  2. ENTRESTO [Suspect]
     Active Substance: SACUBITRIL\VALSARTAN
     Indication: CARDIAC FAILURE
     Dosage: 200 MG, 1X/DAY
     Route: 048
     Dates: start: 2016
  3. BISOPROLOL [Suspect]
     Active Substance: BISOPROLOL
     Indication: CARDIAC FAILURE
     Dosage: 5 MG, 1X/DAY
     Route: 048
  4. ALPRAZOLAM. [Concomitant]
     Active Substance: ALPRAZOLAM
     Dosage: 0.25 DF, UNK
  5. MORPHINE [Concomitant]
     Active Substance: MORPHINE
     Dosage: UNK
     Route: 042
  6. CLOPIDOGREL [Suspect]
     Active Substance: CLOPIDOGREL BISULFATE
     Indication: ARTERIAL DISORDER
     Dosage: 75 MG, 1X/DAY
  7. ATORVASTATIN CALCIUM. [Suspect]
     Active Substance: ATORVASTATIN CALCIUM
     Indication: MYOCARDIAL ISCHAEMIA
     Dosage: 80 MG, 1X/DAY
     Route: 048
  8. SOLU-MEDROL [Concomitant]
     Active Substance: METHYLPREDNISOLONE SODIUM SUCCINATE
     Dosage: 40 MG, UNK
     Route: 042

REACTIONS (4)
  - Respiratory distress [Fatal]
  - Dyspnoea [Fatal]
  - Bone pain [Fatal]
  - Cardiac failure [Fatal]
